FAERS Safety Report 5534823-2 (Version None)
Quarter: 2007Q4

REPORT INFORMATION
  Report Type: 
  Country: None (occurrence: None)
  Receive Date: 20071205
  Receipt Date: 20071123
  Transmission Date: 20080405
  Serious: Yes (Hospitalization)
  Sender: FDA-Public Use
  Company Number: DE-GENENTECH-252164

PATIENT
  Age: 43 Year
  Sex: Female
  Weight: 72 kg

DRUGS (5)
  1. RITUXIMAB [Suspect]
     Indication: LYMPHOMA
     Dosage: 700 MG, UNK
     Dates: start: 20070611
  2. CYCLOPHOSPHAMIDE [Suspect]
     Indication: LYMPHOMA
     Dosage: UNK, UNKNOWN
     Route: 065
     Dates: start: 20070612
  3. DOXORUBICIN HCL [Suspect]
     Indication: LYMPHOMA
     Dates: start: 20070612
  4. VINCRISTINE [Suspect]
     Indication: LYMPHOMA
     Dates: start: 20070612
  5. PREDNISONE TAB [Suspect]
     Indication: LYMPHOMA
     Dates: start: 20070612

REACTIONS (1)
  - FEBRILE NEUTROPENIA [None]
